FAERS Safety Report 6452977-0 (Version None)
Quarter: 2009Q4

REPORT INFORMATION
  Report Type: 
  Country: None (occurrence: None)
  Receive Date: 20091124
  Receipt Date: 20091113
  Transmission Date: 20100525
  Serious: Yes (Hospitalization)
  Sender: FDA-Public Use
  Company Number: PHHO2009CA06303

PATIENT
  Sex: Female
  Weight: 14.1 kg

DRUGS (3)
  1. ICL670A ICL+DISTAB [Suspect]
     Indication: BLOOD IRON INCREASED
     Dosage: 250 MG DAILY
     Route: 048
     Dates: start: 20090301
  2. ANTIBIOTICS [Concomitant]
  3. AMOXIL [Concomitant]

REACTIONS (12)
  - ABDOMINAL DISCOMFORT [None]
  - ATELECTASIS [None]
  - CLOSTRIDIAL INFECTION [None]
  - CONCOMITANT DISEASE PROGRESSION [None]
  - DIARRHOEA [None]
  - DYSPNOEA [None]
  - HAEMATURIA [None]
  - ILEUS [None]
  - PNEUMONIA HAEMOPHILUS [None]
  - PROCTALGIA [None]
  - PRODUCTIVE COUGH [None]
  - PYREXIA [None]
